FAERS Safety Report 9146815 (Version 1)
Quarter: 2013Q1

REPORT INFORMATION
  Report Type: Spontaneous
  Country: US (occurrence: US)
  Receive Date: 20130307
  Receipt Date: 20130307
  Transmission Date: 20140127
  Serious: Yes (Other)
  Sender: FDA-Public Use
  Company Number: US-ABBOTT-13P-163-1056737-00

PATIENT
  Sex: Male

DRUGS (2)
  1. LEVOTHYROXINE [Suspect]
     Indication: MATERNAL EXPOSURE TIMING UNSPECIFIED
     Route: 064
  2. LEVOTHYROXINE [Suspect]

REACTIONS (5)
  - Foetal distress syndrome [Unknown]
  - Foetal exposure during pregnancy [Unknown]
  - Blood thyroid stimulating hormone increased [Recovered/Resolved]
  - Respiratory distress [Unknown]
  - Congenital hypothyroidism [Unknown]
